FAERS Safety Report 13546053 (Version 1)
Quarter: 2017Q2

REPORT INFORMATION
  Report Type: Spontaneous
  Country: US (occurrence: US)
  Receive Date: 20170514
  Receipt Date: 20170514
  Transmission Date: 20170830
  Serious: Yes (Other)
  Sender: FDA-Public Use
  Company Number: None

PATIENT
  Age: 17 Year
  Sex: Female
  Weight: 56.25 kg

DRUGS (1)
  1. MIRALAX [Suspect]
     Active Substance: POLYETHYLENE GLYCOL 3350
     Indication: CONSTIPATION
     Dosage: ?          QUANTITY:1 DOSE;?
     Route: 048
     Dates: start: 20150501, end: 20170505

REACTIONS (2)
  - Adjustment disorder with depressed mood [None]
  - Personality change [None]

NARRATIVE: CASE EVENT DATE: 20170102
